FAERS Safety Report 9393367 (Version 1)
Quarter: 2013Q3

REPORT INFORMATION
  Report Type: Spontaneous
  Country: None (occurrence: None)
  Receive Date: 20130708
  Receipt Date: 20130708
  Transmission Date: 20140515
  Serious: Yes (Hospitalization)
  Sender: FDA-Public Use
  Company Number: IE-022718

PATIENT
  Age: 73 Year
  Sex: Male
  Weight: 61.6 kg

DRUGS (2)
  1. CHLORAMBUCIL [Suspect]
     Indication: CHRONIC LYMPHOCYTIC LEUKAEMIA
     Dosage: DAYS 1-7 EVERY 28 DAYS (10 MG/M2), ORAL
     Route: 048
     Dates: start: 20110225
  2. OFATUMUMAB (OFATUMUMAB) (UNKNOWN) [Suspect]
     Indication: CHRONIC LYMPHOCYTIC LEUKAEMIA
     Dosage: DAY 1 (300 MILLIGRAM), INTRAVENOUS (NOT OTHERWISE SPECIFIED)
     Route: 042
     Dates: start: 20110225

REACTIONS (1)
  - Lower respiratory tract infection [None]
